FAERS Safety Report 12155050 (Version 1)
Quarter: 2016Q1

REPORT INFORMATION
  Report Type: Spontaneous
  Country: FR (occurrence: FR)
  Receive Date: 20160307
  Receipt Date: 20160307
  Transmission Date: 20160526
  Serious: Yes (Hospitalization)
  Sender: FDA-Public Use
  Company Number: FR-GLAXOSMITHKLINE-FR2016GSK030650

PATIENT
  Age: 60 Year
  Sex: Male

DRUGS (5)
  1. SOTALOL HYDROCHLORIDE. [Concomitant]
     Active Substance: SOTALOL HYDROCHLORIDE
     Indication: PRODUCT USED FOR UNKNOWN INDICATION
  2. AZANTAC [Suspect]
     Active Substance: RANITIDINE HYDROCHLORIDE
     Indication: PREMEDICATION
     Dosage: UNK
     Route: 048
     Dates: start: 20140121, end: 20140121
  3. ZOPHREN [Concomitant]
     Active Substance: ONDANSETRON
     Indication: PREMEDICATION
     Dosage: UNK
     Dates: start: 20140121, end: 20150121
  4. PACLITAXEL. [Suspect]
     Active Substance: PACLITAXEL
     Indication: BRONCHIAL CARCINOMA
     Dosage: UNK
     Route: 042
     Dates: start: 20140121, end: 20140121
  5. SOLU-MEDROL [Concomitant]
     Active Substance: METHYLPREDNISOLONE SODIUM SUCCINATE
     Indication: PREMEDICATION
     Dosage: UNK
     Dates: start: 20140121, end: 20140121

REACTIONS (3)
  - Feeling hot [Recovered/Resolved]
  - Erythema [Recovered/Resolved]
  - Blood pressure decreased [Recovered/Resolved]

NARRATIVE: CASE EVENT DATE: 20140121
